FAERS Safety Report 13367325 (Version 2)
Quarter: 2017Q2

REPORT INFORMATION
  Report Type: Spontaneous
  Country: CA (occurrence: CA)
  Receive Date: 20170324
  Receipt Date: 20170515
  Transmission Date: 20170830
  Serious: Yes (Disabling, Other)
  Sender: FDA-Public Use
  Company Number: CA-CONCORDIA PHARMACEUTICALS INC.-GSH201703-001890

PATIENT
  Age: 69 Year
  Sex: Female

DRUGS (6)
  1. ENBREL [Suspect]
     Active Substance: ETANERCEPT
     Indication: RHEUMATOID ARTHRITIS
     Route: 058
     Dates: start: 20130501, end: 20130701
  2. ORENCIA [Suspect]
     Active Substance: ABATACEPT
     Indication: PRODUCT USED FOR UNKNOWN INDICATION
     Route: 065
     Dates: start: 20140731, end: 201509
  3. METHOTREXATE. [Suspect]
     Active Substance: METHOTREXATE
     Indication: PRODUCT USED FOR UNKNOWN INDICATION
     Dosage: WEEKLY
     Route: 065
     Dates: start: 20110122, end: 20130322
  4. ACTEMRA [Suspect]
     Active Substance: TOCILIZUMAB
     Indication: PRODUCT USED FOR UNKNOWN INDICATION
     Route: 065
     Dates: start: 20130812, end: 20140114
  5. ARAVA [Suspect]
     Active Substance: LEFLUNOMIDE
     Indication: PRODUCT USED FOR UNKNOWN INDICATION
     Route: 048
     Dates: start: 20150602
  6. HYDROXYCHLOROQUINE [Suspect]
     Active Substance: HYDROXYCHLOROQUINE
     Indication: PRODUCT USED FOR UNKNOWN INDICATION
     Route: 065
     Dates: start: 20100323

REACTIONS (8)
  - Drug ineffective [Unknown]
  - Dyspnoea [Unknown]
  - Disability [Unknown]
  - Neutropenia [Unknown]
  - Mobility decreased [Unknown]
  - Synovitis [Unknown]
  - Drug intolerance [Unknown]
  - Hypersensitivity [Unknown]

NARRATIVE: CASE EVENT DATE: 20151006
